FAERS Safety Report 9716282 (Version 1)
Quarter: 2013Q4

REPORT INFORMATION
  Report Type: Spontaneous
  Country: US (occurrence: US)
  Receive Date: 20131127
  Receipt Date: 20131127
  Transmission Date: 20140711
  Serious: No
  Sender: FDA-Public Use
  Company Number: US-B.I. PHARMACEUTICALS,INC./RIDGEFIELD-2013-BI-37725BP

PATIENT
  Sex: Male

DRUGS (3)
  1. SPIRIVA [Suspect]
  2. ADVAIR [Concomitant]
  3. VENTOLIN [Concomitant]

REACTIONS (2)
  - Dyspnoea exertional [Unknown]
  - Dyspnoea [Unknown]
